FAERS Safety Report 10752057 (Version 1)
Quarter: 2015Q1

REPORT INFORMATION
  Report Type: Spontaneous
  Country: US (occurrence: US)
  Receive Date: 20150130
  Receipt Date: 20150130
  Transmission Date: 20150721
  Serious: Yes (Life-Threatening, Other)
  Sender: FDA-Public Use
  Company Number: US-ASTRAZENECA-2015SE09109

PATIENT
  Age: 29 Year
  Sex: Male

DRUGS (1)
  1. SEROQUEL [Suspect]
     Active Substance: QUETIAPINE FUMARATE
     Dosage: UNKNOWN
     Route: 048
     Dates: start: 2005

REACTIONS (3)
  - Suicidal ideation [Unknown]
  - Suicide attempt [Recovered/Resolved]
  - Intentional product misuse [Unknown]
